FAERS Safety Report 4448054-0 (Version None)
Quarter: 2004Q3

REPORT INFORMATION
  Report Type: 
  Country: None (occurrence: None)
  Receive Date: 20040913
  Receipt Date: 20040729
  Transmission Date: 20050211
  Serious: Yes (Hospitalization)
  Sender: FDA-Public Use
  Company Number: US-BRISTOL-MYERS SQUIBB COMPANY-12655775

PATIENT
  Age: 70 Year
  Sex: Female

DRUGS (4)
  1. ABILIFY [Suspect]
     Indication: PSYCHOTIC DISORDER
     Dosage: ONE 20 MG TABLET AND ONE 15 MG TABLET ONCE A DAY.
     Route: 048
  2. SEROQUEL [Concomitant]
     Dosage: 6-9 MONTHS
  3. ZOLOFT [Concomitant]
  4. CLONAZEPAM [Concomitant]

REACTIONS (2)
  - PRESCRIBED OVERDOSE [None]
  - VIRAL INFECTION [None]
